FAERS Safety Report 15170218 (Version 1)
Quarter: 2018Q3

REPORT INFORMATION
  Report Type: Spontaneous
  Country: HU (occurrence: HU)
  Receive Date: 20180720
  Receipt Date: 20180720
  Transmission Date: 20181010
  Serious: Yes (Other)
  Sender: FDA-Public Use
  Company Number: HU-ELI_LILLY_AND_COMPANY-HU201807008638

PATIENT
  Age: 59 Year
  Sex: Male

DRUGS (11)
  1. ERBITUX [Suspect]
     Active Substance: CETUXIMAB
     Indication: RECTOSIGMOID CANCER
     Dosage: 900 MG, 2/M
     Route: 042
     Dates: start: 20180410, end: 20180620
  2. CO PERINEVA [Concomitant]
     Active Substance: INDAPAMIDE\PERINDOPRIL ERBUMINE
     Indication: PRODUCT USED FOR UNKNOWN INDICATION
     Dosage: 1 DF, DAILY
     Route: 048
  3. DOXAZOSIN HEXAL [Concomitant]
     Indication: HYPERTENSION
     Dosage: 4 MG, DAILY
     Route: 048
  4. NEO FERRO FOLGAMMA [Concomitant]
     Indication: MINERAL SUPPLEMENTATION
     Dosage: 1 DF, UNKNOWN
     Route: 048
  5. THIOGAMMA [Concomitant]
     Active Substance: THIOCTIC ACID
     Indication: PRODUCT USED FOR UNKNOWN INDICATION
     Dosage: 600 MG, DAILY
     Route: 048
  6. CALCIUM FOLINATE [Concomitant]
     Active Substance: LEUCOVORIN CALCIUM
     Indication: RECTOSIGMOID CANCER
     Dosage: 720 MG, UNKNOWN
     Route: 042
     Dates: start: 20180131
  7. SUPRASTIN [Concomitant]
     Active Substance: CHLOROPYRAMINE HYDROCHLORIDE
     Indication: PREMEDICATION
     Dosage: 40 MG, UNKNOWN
     Route: 042
  8. FLUOROURACIL. [Concomitant]
     Active Substance: FLUOROURACIL
     Dosage: 2200 MG, UNKNOWN
     Route: 041
     Dates: start: 20180131
  9. MEFORAL                            /00082702/ [Concomitant]
     Indication: DIABETES MELLITUS
     Dosage: 1 DF, UNKNOWN
     Route: 048
  10. FLUOROURACIL. [Concomitant]
     Active Substance: FLUOROURACIL
     Indication: RECTOSIGMOID CANCER
     Dosage: 1400 MG, UNKNOWN
     Route: 040
     Dates: start: 20180131
  11. ONDANSETRON KABI [Concomitant]
     Active Substance: ONDANSETRON
     Indication: PREMEDICATION
     Dosage: 8 MG, UNKNOWN
     Route: 042

REACTIONS (3)
  - Palpitations [Recovered/Resolved]
  - Chills [Recovered/Resolved]
  - Nausea [Recovered/Resolved]

NARRATIVE: CASE EVENT DATE: 20180620
